FAERS Safety Report 5877210-X (Version None)
Quarter: 2008Q3

REPORT INFORMATION
  Report Type: 
  Country: None (occurrence: None)
  Receive Date: 20080910
  Receipt Date: 20080829
  Transmission Date: 20090109
  Serious: Yes (Other)
  Sender: FDA-Public Use
  Company Number: US-PFIZER INC-2008061213

PATIENT
  Sex: Male

DRUGS (1)
  1. CHANTIX [Suspect]
     Indication: SMOKING CESSATION THERAPY
     Dates: start: 20080703, end: 20080710

REACTIONS (7)
  - BACK PAIN [None]
  - HAEMATEMESIS [None]
  - HYPOAESTHESIA [None]
  - IRRITABILITY [None]
  - MALAISE [None]
  - MUSCLE SPASMS [None]
  - VOMITING [None]
